FAERS Safety Report 14778997 (Version 1)
Quarter: 2018Q2

REPORT INFORMATION
  Report Type: Other
  Country: FR (occurrence: FR)
  Receive Date: 20180419
  Receipt Date: 20180419
  Transmission Date: 20180711
  Serious: Yes (Hospitalization)
  Sender: FDA-Public Use
  Company Number: FR-GLENMARK PHARMACEUTICALS-2018GMK034450

PATIENT

DRUGS (16)
  1. SUFENTANIL [Suspect]
     Active Substance: SUFENTANIL
     Indication: SEDATION
     Dosage: 30 ?G, UNK
     Route: 042
     Dates: start: 20180322, end: 20180331
  2. MIDAZOLAM [Suspect]
     Active Substance: MIDAZOLAM HYDROCHLORIDE
     Indication: SEDATION
     Dosage: 12 MG, UNK
     Route: 042
     Dates: start: 20180322, end: 20180331
  3. KETAMINE RENAUDIN [Suspect]
     Active Substance: KETAMINE
     Indication: SEDATION
     Dosage: 300 MG, UNK
     Route: 042
     Dates: start: 20180322, end: 20180329
  4. HEPARINE CALCIUM PANPHARMA [Concomitant]
     Indication: THROMBOSIS PROPHYLAXIS
     Dosage: UNK
     Route: 042
     Dates: start: 20180322
  5. THIAMINE. [Concomitant]
     Active Substance: THIAMINE
     Indication: HYPOVITAMINOSIS
     Dosage: UNK (JUSQU^? 500 MG/J)
     Route: 042
     Dates: start: 20180324, end: 20180328
  6. ROVAMYCINE                         /00074401/ [Concomitant]
     Active Substance: SPIRAMYCIN
     Indication: PRODUCT USED FOR UNKNOWN INDICATION
     Dosage: UNK (1.5 MUI/8 H)
     Route: 042
     Dates: start: 20180322, end: 20180401
  7. ACETYLCYSTEINE. [Suspect]
     Active Substance: ACETYLCYSTEINE
     Indication: PRODUCT USED FOR UNKNOWN INDICATION
     Dosage: UNK (200 MG/8 PUIS 12 G)
     Route: 042
     Dates: start: 20180326, end: 20180329
  8. FLUCORTAC [Suspect]
     Active Substance: FLUDROCORTISONE ACETATE
     Indication: ADRENAL INSUFFICIENCY
     Dosage: 1 DF, UNK
     Route: 048
     Dates: start: 20180323, end: 20180328
  9. ERYTHROCINE /00020904/ [Suspect]
     Active Substance: ERYTHROMYCIN ETHYLSUCCINATE
     Indication: PRODUCT USED FOR UNKNOWN INDICATION
     Dosage: 100 MG, UNK
     Route: 042
     Dates: start: 20180327, end: 20180329
  10. NIMBEX [Suspect]
     Active Substance: CISATRACURIUM BESYLATE
     Indication: SEDATION
     Dosage: 20 MG, UNK
     Route: 042
     Dates: start: 20180326, end: 20180328
  11. OFLOXACINE [Suspect]
     Active Substance: OFLOXACIN
     Indication: PRODUCT USED FOR UNKNOWN INDICATION
     Dosage: 200 MG, UNK
     Route: 042
     Dates: start: 20180322, end: 20180329
  12. CORDARONE [Suspect]
     Active Substance: AMIODARONE HYDROCHLORIDE
     Indication: LEFT VENTRICULAR DYSFUNCTION
     Dosage: 200 MG, UNK
     Route: 048
     Dates: start: 20180322, end: 20180329
  13. PYRIDOXINE HYDROCHLORIDE. [Concomitant]
     Active Substance: PYRIDOXINE HYDROCHLORIDE
     Indication: HYPOVITAMINOSIS
     Dosage: UNK (JUSQU^? 500 MG/J)
     Route: 042
     Dates: start: 20180324, end: 20180328
  14. PANTOPRAZOLE SODIUM. [Suspect]
     Active Substance: PANTOPRAZOLE SODIUM
     Indication: STRESS ULCER
     Dosage: 40 MG, UNK
     Route: 042
     Dates: start: 20180322, end: 20180329
  15. NORADRENALINE                      /00127501/ [Suspect]
     Active Substance: NOREPINEPHRINE
     Indication: CARDIOGENIC SHOCK
     Dosage: UNK (DE 8 MG ? 32 MG PAR 50 ML)
     Route: 042
     Dates: start: 20180322, end: 20180330
  16. HYDROCORTISONE BUTYRATE. [Suspect]
     Active Substance: HYDROCORTISONE BUTYRATE
     Indication: ADRENAL INSUFFICIENCY
     Dosage: 200 MG, UNK
     Route: 042
     Dates: start: 20180322, end: 20180329

REACTIONS (1)
  - Hepatitis [Recovering/Resolving]

NARRATIVE: CASE EVENT DATE: 20180327
